FAERS Safety Report 8710212 (Version 3)
Quarter: 2013Q4

REPORT INFORMATION
  Report Type: Spontaneous
  Country: IT (occurrence: IT)
  Receive Date: 20120807
  Receipt Date: 20131007
  Transmission Date: 20140711
  Serious: Yes (Hospitalization, Other)
  Sender: FDA-Public Use
  Company Number: IT-AMGEN-ITASP2012048510

PATIENT
  Age: 73 Year
  Sex: Female

DRUGS (7)
  1. PROLIA [Suspect]
     Indication: OSTEOPOROSIS POSTMENOPAUSAL
     Dosage: 60 MG, Q6MO
     Route: 058
     Dates: start: 20120201
  2. MEDROL                             /00049601/ [Concomitant]
     Dosage: 6 MG, UNK
     Route: 048
     Dates: start: 19980101, end: 20120802
  3. CACIT D3 [Concomitant]
     Dosage: 1000 MG, UNK
     Route: 048
     Dates: start: 20020101, end: 20120802
  4. DIBASE [Concomitant]
     Dosage: 1000 IU, UNK
     Route: 048
     Dates: start: 20120601, end: 20120802
  5. ARAVA [Concomitant]
     Indication: RHEUMATOID ARTHRITIS
     Dosage: 20 MG, QD
  6. DICLOGEN                           /00372302/ [Concomitant]
     Dosage: 100 MG, QD
  7. PANTOPAN [Concomitant]
     Dosage: 20 MG, QD

REACTIONS (1)
  - Atypical femur fracture [Recovered/Resolved with Sequelae]
